FAERS Safety Report 19265366 (Version 8)
Quarter: 2021Q4

REPORT INFORMATION
  Report Type: Report from Study
  Country: US (occurrence: US)
  Receive Date: 20210517
  Receipt Date: 20211220
  Transmission Date: 20220303
  Serious: No
  Sender: FDA-Public Use
  Company Number: NVSC2021US103722

PATIENT
  Age: 31 Year
  Sex: Female

DRUGS (5)
  1. KESIMPTA [Suspect]
     Active Substance: OFATUMUMAB
     Indication: Multiple sclerosis
     Dosage: 20 MG/KG, QW
     Route: 058
     Dates: start: 20210421
  2. KESIMPTA [Suspect]
     Active Substance: OFATUMUMAB
     Dosage: UNK
     Route: 065
  3. KESIMPTA [Suspect]
     Active Substance: OFATUMUMAB
     Dosage: UNK
     Route: 065
  4. MIRTAZAPINE [Concomitant]
     Active Substance: MIRTAZAPINE
     Indication: Product used for unknown indication
     Route: 065
  5. VITAMIN D2 [Concomitant]
     Active Substance: ERGOCALCIFEROL
     Indication: Product used for unknown indication
     Route: 065

REACTIONS (12)
  - Muscle twitching [Recovered/Resolved]
  - Contusion [Recovering/Resolving]
  - Amnesia [Unknown]
  - Pain [Recovering/Resolving]
  - Feeling abnormal [Unknown]
  - Irritability [Unknown]
  - Libido decreased [Unknown]
  - Emotional disorder [Unknown]
  - Memory impairment [Unknown]
  - Injection site pain [Recovering/Resolving]
  - Drug ineffective [Unknown]
  - Panic attack [Unknown]

NARRATIVE: CASE EVENT DATE: 20211027
